FAERS Safety Report 17891327 (Version 2)
Quarter: 2020Q3

REPORT INFORMATION
  Report Type: Spontaneous
  Country: BR (occurrence: BR)
  Receive Date: 20200612
  Receipt Date: 20200713
  Transmission Date: 20201103
  Serious: Yes (Life-Threatening, Other)
  Sender: FDA-Public Use
  Company Number: BR-ASTRAZENECA-2020SE75335

PATIENT
  Age: 34 Year
  Sex: Male
  Weight: 110 kg

DRUGS (4)
  1. SYMBICORT [Suspect]
     Active Substance: BUDESONIDE\FORMOTEROL FUMARATE DIHYDRATE
     Indication: ASTHMA
     Dosage: 160/4.5 MCG TWO TIMES A DAY TWICE A DAY (ONE IN THE MORNING AND ONCE AT NIGHT)
     Route: 055
     Dates: start: 202003, end: 2020
  2. LEVOLUKAST [Concomitant]
  3. PANTOPRAZOLE [Concomitant]
     Active Substance: PANTOPRAZOLE
  4. FLIXOTIDE [Concomitant]
     Active Substance: FLUTICASONE PROPIONATE
     Dosage: DAILY

REACTIONS (4)
  - Dyspnoea exertional [Recovered/Resolved]
  - Drug ineffective [Not Recovered/Not Resolved]
  - Device delivery system issue [Not Recovered/Not Resolved]
  - Asthmatic crisis [Recovered/Resolved]

NARRATIVE: CASE EVENT DATE: 2020
